FAERS Safety Report 8043697 (Version 2)
Quarter: 2013Q1

REPORT INFORMATION
  Report Type: Spontaneous
  Country: US (occurrence: US)
  Receive Date: 20110719
  Receipt Date: 20130108
  Transmission Date: 20140127
  Serious: Yes (Death, Hospitalization)
  Sender: FDA-Public Use
  Company Number: US-GLAXOSMITHKLINE-A0849317A

PATIENT
  Age: 47 Year
  Sex: Male

DRUGS (1)
  1. AVANDIA [Suspect]
     Indication: DIABETES MELLITUS
     Dosage: 4MG TWICE PER DAY
     Route: 048
     Dates: start: 20050402, end: 20060331

REACTIONS (21)
  - Death [Fatal]
  - Ischaemic cardiomyopathy [Unknown]
  - Transient ischaemic attack [Unknown]
  - Bacterial infection [Unknown]
  - Pseudomonas infection [Unknown]
  - Enterococcal infection [Unknown]
  - Pneumonia klebsiella [Unknown]
  - Pneumonia aspiration [Unknown]
  - Pancreatitis [Unknown]
  - Urinary tract infection [Unknown]
  - Impaired gastric emptying [Unknown]
  - Gallbladder disorder [Unknown]
  - Vocal cord disorder [Unknown]
  - Vomiting [Unknown]
  - Thrombosis [Unknown]
  - Blood pressure abnormal [Unknown]
  - Gastrointestinal disorder [Unknown]
  - Ulcer haemorrhage [Unknown]
  - Cardiac disorder [Fatal]
  - Multi-organ disorder [Fatal]
  - Cerebrovascular accident [Unknown]
